FAERS Safety Report 7072180-3 (Version None)
Quarter: 2010Q4

REPORT INFORMATION
  Report Type: 
  Country: None (occurrence: None)
  Receive Date: 20101029
  Receipt Date: 20100113
  Transmission Date: 20110411
  Serious: No
  Sender: FDA-Public Use
  Company Number: A0834984A

PATIENT
  Age: 91 Year
  Sex: Female

DRUGS (7)
  1. ADVAIR DISKUS 100/50 [Suspect]
     Dosage: 1PUFF TWICE PER DAY
     Route: 055
     Dates: start: 20030101
  2. LEVOTHYROXINE [Concomitant]
  3. OMEPRAZOLE [Concomitant]
  4. VERAPAMIL [Concomitant]
  5. ZEMPLAR [Concomitant]
  6. MULTIPLE VITAMIN [Concomitant]
  7. VITAMIN B-12 [Concomitant]

REACTIONS (4)
  - INCREASED UPPER AIRWAY SECRETION [None]
  - ORAL DISCOMFORT [None]
  - ORAL MUCOSAL EXFOLIATION [None]
  - PRODUCT QUALITY ISSUE [None]
